FAERS Safety Report 6061325-X (Version None)
Quarter: 2009Q1

REPORT INFORMATION
  Report Type: 
  Country: None (occurrence: None)
  Receive Date: 20090130
  Receipt Date: 20090130
  Transmission Date: 20090719
  Serious: Yes (Death)
  Sender: FDA-Public Use
  Company Number: None

PATIENT
  Sex: Male
  Weight: 111 kg

DRUGS (4)
  1. TRETINOIN [Suspect]
     Indication: PROGRESSIVE MULTIFOCAL LEUKOENCEPHALOPATHY
     Dosage: 50MG Q12H PO
     Route: 048
     Dates: start: 20081128
  2. ZOSYN [Concomitant]
  3. GENTAMICIN [Concomitant]
  4. VANCOMYCIN [Concomitant]

REACTIONS (9)
  - ASPARTATE AMINOTRANSFERASE INCREASED [None]
  - BLOOD BILIRUBIN INCREASED [None]
  - BLOOD MAGNESIUM INCREASED [None]
  - BLOOD PHOSPHORUS INCREASED [None]
  - CARDIAC ARREST [None]
  - CARDIAC TAMPONADE [None]
  - OXYGEN SATURATION DECREASED [None]
  - PERICARDIAL EFFUSION [None]
  - RETINOIC ACID SYNDROME [None]
